FAERS Safety Report 26185775 (Version 1)
Quarter: 2025Q4

REPORT INFORMATION
  Report Type: Report from Study
  Country: CO (occurrence: CO)
  Receive Date: 20251222
  Receipt Date: 20251222
  Transmission Date: 20260117
  Serious: Yes (Hospitalization)
  Sender: ABBVIE
  Company Number: CO-ABBVIE-6600433

PATIENT
  Age: 74 Year
  Sex: Female
  Weight: 76 kg

DRUGS (1)
  1. SKYRIZI [Suspect]
     Active Substance: RISANKIZUMAB-RZAA
     Indication: Psoriasis
     Dosage: FORM STRENGTH-150MG
     Route: 058
     Dates: start: 20230616, end: 20250902

REACTIONS (6)
  - Bronchitis [Not Recovered/Not Resolved]
  - Dengue fever [Not Recovered/Not Resolved]
  - Asthenia [Unknown]
  - Pain [Unknown]
  - Dysphonia [Unknown]
  - Pyrexia [Unknown]

NARRATIVE: CASE EVENT DATE: 20251201
